FAERS Safety Report 15655842 (Version 4)
Quarter: 2019Q2

REPORT INFORMATION
  Report Type: Report from Study
  Country: JP (occurrence: JP)
  Receive Date: 20181126
  Receipt Date: 20190521
  Transmission Date: 20190711
  Serious: Yes (Life-Threatening, Hospitalization, Disabling)
  Sender: FDA-Public Use
  Company Number: JP-BIOGEN-2018BI00534492

PATIENT
  Age: 3 Year
  Sex: Male
  Weight: 11.7 kg

DRUGS (31)
  1. SEVOFLURANE. [Concomitant]
     Active Substance: SEVOFLURANE
     Route: 050
     Dates: start: 20171101, end: 20171101
  2. SEVOFLURANE. [Concomitant]
     Active Substance: SEVOFLURANE
     Route: 050
     Dates: start: 20171115, end: 20171115
  3. LIDOCAINE HYDROCHLORIDE. [Concomitant]
     Active Substance: LIDOCAINE HYDROCHLORIDE
     Route: 050
     Dates: start: 20180822, end: 20180822
  4. LIDOCAINE HYDROCHLORIDE. [Concomitant]
     Active Substance: LIDOCAINE HYDROCHLORIDE
     Indication: INVESTIGATION
     Route: 050
     Dates: start: 20181116, end: 20181116
  5. SPINRAZA [Suspect]
     Active Substance: NUSINERSEN
     Route: 050
     Dates: start: 20171101, end: 20171101
  6. SPINRAZA [Suspect]
     Active Substance: NUSINERSEN
     Route: 050
     Dates: start: 20171115, end: 20171115
  7. MUCODYNE [Concomitant]
     Active Substance: CARBOCYSTEINE
     Indication: RESPIRATORY DISORDER
     Dates: end: 201805
  8. LIDOCAINE HYDROCHLORIDE. [Concomitant]
     Active Substance: LIDOCAINE HYDROCHLORIDE
     Route: 050
     Dates: start: 20171115, end: 20171115
  9. LIDOCAINE HYDROCHLORIDE. [Concomitant]
     Active Substance: LIDOCAINE HYDROCHLORIDE
     Route: 050
     Dates: start: 20171220, end: 20171220
  10. URSO [Concomitant]
     Active Substance: URSODIOL
     Indication: HEPATIC FUNCTION ABNORMAL
     Dates: end: 201801
  11. MIYA-BM [Concomitant]
     Active Substance: CLOSTRIDIUM BUTYRICUM SPORES STRAIN M-55
     Indication: DIARRHOEA
     Dates: end: 201805
  12. LIDOCAINE HYDROCHLORIDE. [Concomitant]
     Active Substance: LIDOCAINE HYDROCHLORIDE
     Indication: ANAESTHESIA PROCEDURE
     Route: 050
     Dates: start: 20171101, end: 20171101
  13. TRICLORYL [Concomitant]
     Active Substance: TRICLOFOS SODIUM
     Indication: INVESTIGATION
     Dates: start: 20180509, end: 20180509
  14. RAVONAL [Concomitant]
     Active Substance: THIOPENTAL
     Indication: INVESTIGATION
     Route: 050
     Dates: start: 20180509, end: 20180509
  15. RAVONAL [Concomitant]
     Active Substance: THIOPENTAL
     Route: 050
     Dates: start: 20181205, end: 20181205
  16. ERYTHROCIN W [Concomitant]
     Indication: RESPIRATORY DISORDER
  17. TRICLORYL [Concomitant]
     Active Substance: TRICLOFOS SODIUM
     Dates: start: 20180510, end: 20180510
  18. SPINRAZA [Suspect]
     Active Substance: NUSINERSEN
     Route: 050
     Dates: start: 20171220, end: 20171220
  19. SPINRAZA [Suspect]
     Active Substance: NUSINERSEN
     Route: 050
     Dates: start: 20180425, end: 20180425
  20. SEVOFLURANE. [Concomitant]
     Active Substance: SEVOFLURANE
     Indication: ANAESTHESIA PROCEDURE
     Route: 050
     Dates: start: 20171018, end: 20171018
  21. RAVONAL [Concomitant]
     Active Substance: THIOPENTAL
     Route: 050
     Dates: start: 20181127, end: 20181127
  22. SPINRAZA [Suspect]
     Active Substance: NUSINERSEN
     Indication: SPINAL MUSCULAR ATROPHY
     Route: 050
     Dates: start: 20171018, end: 20171018
  23. SPINRAZA [Suspect]
     Active Substance: NUSINERSEN
     Route: 050
     Dates: start: 20180822, end: 20180822
  24. INCREMIN [Concomitant]
     Active Substance: FERRIC PYROPHOSPHATE
     Indication: ANAEMIA
     Dates: end: 201808
  25. RAVONAL [Concomitant]
     Active Substance: THIOPENTAL
     Route: 050
     Dates: start: 20180510, end: 20180510
  26. ERYTHROCIN [Concomitant]
     Active Substance: ERYTHROMYCIN LACTOBIONATE
     Indication: RESPIRATORY DISORDER
  27. ERYTHROCIN [Concomitant]
     Active Substance: ERYTHROMYCIN LACTOBIONATE
     Route: 048
  28. SEVOFLURANE. [Concomitant]
     Active Substance: SEVOFLURANE
     Route: 050
     Dates: start: 20171220, end: 20171220
  29. SEVOFLURANE. [Concomitant]
     Active Substance: SEVOFLURANE
     Route: 050
     Dates: start: 20180425, end: 20180425
  30. SEVOFLURANE. [Concomitant]
     Active Substance: SEVOFLURANE
     Route: 050
     Dates: start: 20180822, end: 20180822
  31. LIDOCAINE HYDROCHLORIDE. [Concomitant]
     Active Substance: LIDOCAINE HYDROCHLORIDE
     Route: 050
     Dates: start: 20180425, end: 20180425

REACTIONS (3)
  - Tachycardia [Recovered/Resolved]
  - Encephalopathy [Not Recovered/Not Resolved]
  - Back pain [Recovered/Resolved]

NARRATIVE: CASE EVENT DATE: 20171018
